FAERS Safety Report 14478264 (Version 4)
Quarter: 2018Q3

REPORT INFORMATION
  Report Type: Report from Study
  Country: DE (occurrence: DE)
  Receive Date: 20180202
  Receipt Date: 20180809
  Transmission Date: 20181010
  Serious: Yes (Hospitalization, Other)
  Sender: FDA-Public Use
  Company Number: DE-TEVA-2018-DE-850673

PATIENT
  Sex: Female
  Weight: 94 kg

DRUGS (11)
  1. QUETIAPINE FUMARATE. [Suspect]
     Active Substance: QUETIAPINE FUMARATE
     Indication: PSYCHOMOTOR HYPERACTIVITY
     Dosage: 1 DOSAGE FORMS DAILY; 1 DF (300MG), QD, 0?0?0?1
     Route: 048
     Dates: start: 20111128
  2. SPIRONOLACTONE. [Concomitant]
     Active Substance: SPIRONOLACTONE
     Indication: CARDIAC FAILURE
     Route: 065
     Dates: start: 20170410, end: 20170831
  3. SPIRONOLACTONE. [Concomitant]
     Active Substance: SPIRONOLACTONE
     Indication: LEFT VENTRICULAR FAILURE
     Dosage: .5 DOSAGE FORMS DAILY; 0.5 DF (50MG), QD, 0?0.5?0?0
     Route: 048
     Dates: start: 20170321, end: 20170831
  4. PHENPROCOUMON [Concomitant]
     Active Substance: PHENPROCOUMON
     Indication: ATRIAL FIBRILLATION
     Dosage: 3 MG, PRN (ACCORDING TO ^QUICK VALUE^)
     Route: 048
     Dates: start: 20110816
  5. RAMIPRIL. [Concomitant]
     Active Substance: RAMIPRIL
     Indication: HYPERTENSION
     Dosage: 1 DOSAGE FORMS DAILY; 0.5 DF, BID
     Route: 048
     Dates: start: 20071207, end: 20170321
  6. TORASEMIDE [Concomitant]
     Active Substance: TORSEMIDE
     Indication: FLUID RETENTION
     Dosage: 2 DF, QD AND 1 DF, QD
     Route: 048
     Dates: start: 20160712, end: 20170428
  7. ENTRESTO [Suspect]
     Active Substance: SACUBITRIL\VALSARTAN
     Indication: CARDIAC FAILURE CHRONIC
     Dosage: 2 DOSAGE FORMS DAILY; 1 DF (24 MG SACUBITRIL, 26 MG VALSARTAN), BID
     Route: 048
     Dates: start: 20170322
  8. AMIODARONE [Concomitant]
     Active Substance: AMIODARONE
     Indication: ATRIAL FIBRILLATION
     Dosage: 1 DOSAGE FORMS DAILY; 1 DF, QD
     Route: 048
     Dates: start: 20071207
  9. AMIODARONE [Concomitant]
     Active Substance: AMIODARONE
     Indication: ARRHYTHMIA
  10. NOVALGIN (METAMIZOLE SODIUM) [Concomitant]
     Active Substance: METAMIZOLE SODIUM
     Indication: PAIN
     Dosage: 500 MILLIGRAM DAILY; 500 MG, TID  (1?1?1?0)
     Route: 048
     Dates: start: 20170922
  11. METOPROLOL SUCCINATE. [Concomitant]
     Active Substance: METOPROLOL SUCCINATE
     Indication: ATRIAL FIBRILLATION
     Dosage: 2 DOSAGE FORMS DAILY; 1 DF (47.5 MG), BID
     Route: 048
     Dates: start: 20170712

REACTIONS (13)
  - Gastroenteritis [Recovered/Resolved]
  - Blood potassium increased [Unknown]
  - Angina pectoris [Recovered/Resolved]
  - Cholelithiasis [Unknown]
  - Blood creatinine increased [Not Recovered/Not Resolved]
  - Contraindicated product administered [Unknown]
  - Cardiac failure [Recovered/Resolved]
  - Acute kidney injury [Recovering/Resolving]
  - Hepatic cyst [Unknown]
  - Glomerular filtration rate decreased [Unknown]
  - Device stimulation issue [Recovered/Resolved]
  - Urinary retention [Unknown]
  - Cardiac failure [Unknown]

NARRATIVE: CASE EVENT DATE: 20170409
